FAERS Safety Report 20016367 (Version 1)
Quarter: 2021Q4

REPORT INFORMATION
  Report Type: Spontaneous
  Country: US (occurrence: None)
  Receive Date: 20211103
  Receipt Date: 20211103
  Transmission Date: 20220303
  Serious: Yes (Other)
  Sender: FDA-Public Use
  Company Number: None

PATIENT
  Age: 71 Year
  Sex: Female
  Weight: 72.6 kg

DRUGS (1)
  1. REGEN-COV [Suspect]
     Active Substance: CASIRIVIMAB\IMDEVIMAB
     Indication: SARS-CoV-2 test positive
     Dosage: OTHER QUANTITY : 600MG/600MG PER 10;?FREQUENCY : ONCE;?OTHER ROUTE : IVPB;?
     Route: 050
     Dates: start: 20211027

REACTIONS (1)
  - Urticaria [None]

NARRATIVE: CASE EVENT DATE: 20211028
